FAERS Safety Report 18581979 (Version 1)
Quarter: 2020Q4

REPORT INFORMATION
  Report Type: Spontaneous
  Country: GB (occurrence: GB)
  Receive Date: 20201204
  Receipt Date: 20201204
  Transmission Date: 20210114
  Serious: Yes (Death, Other)
  Sender: FDA-Public Use
  Company Number: GB-GALDERMA-GB2020050660

PATIENT
  Age: 67 Year
  Sex: Male

DRUGS (5)
  1. DOXYCYCLINE. [Suspect]
     Active Substance: DOXYCYCLINE
     Indication: COVID-19 PNEUMONIA
     Route: 048
     Dates: start: 2020
  2. OSELTAMIVIR [Concomitant]
     Active Substance: OSELTAMIVIR
     Indication: COVID-19 PNEUMONIA
     Route: 048
     Dates: start: 2020
  3. CEFTRIAXONE. [Concomitant]
     Active Substance: CEFTRIAXONE
     Indication: COVID-19 PNEUMONIA
     Route: 042
     Dates: start: 2020
  4. WARFARIN [Concomitant]
     Active Substance: WARFARIN
     Indication: ATRIAL FIBRILLATION
  5. WARFARIN [Concomitant]
     Active Substance: WARFARIN
     Indication: ANTICOAGULANT THERAPY
     Route: 065

REACTIONS (8)
  - Hypoxia [Unknown]
  - Condition aggravated [Unknown]
  - Multiple organ dysfunction syndrome [Unknown]
  - Acute respiratory distress syndrome [Unknown]
  - Priapism [Unknown]
  - Intentional product use issue [Recovered/Resolved]
  - Acquired phimosis [Unknown]
  - Penile haemorrhage [Unknown]

NARRATIVE: CASE EVENT DATE: 2020
